FAERS Safety Report 5271595-3 (Version None)
Quarter: 2007Q1

REPORT INFORMATION
  Report Type: 
  Country: None (occurrence: None)
  Receive Date: 20070321
  Receipt Date: 20070309
  Transmission Date: 20070707
  Serious: Yes (Other)
  Sender: FDA-Public Use
  Company Number: JP-PFIZER INC-2007019117

PATIENT
  Age: 60 Year
  Sex: Male

DRUGS (6)
  1. CABASER [Suspect]
     Indication: PARKINSON'S DISEASE
     Dosage: DAILY DOSE:10MG
     Route: 048
  2. LEVODOPA [Suspect]
     Indication: PARKINSON'S DISEASE
     Dosage: DAILY DOSE:600MG
     Route: 048
  3. SELEGILINE HYDROCHLORIDE [Suspect]
     Indication: PARKINSON'S DISEASE
     Route: 048
  4. INTERFERON [Concomitant]
  5. PRAMIPEXOLE DIHYDROCHLORIDE [Concomitant]
     Route: 048
     Dates: start: 20070201, end: 20070101
  6. ANTI-PARKINSON AGENTS [Concomitant]

REACTIONS (1)
  - DELIRIUM [None]
